FAERS Safety Report 4472720-4 (Version None)
Quarter: 2004Q4

REPORT INFORMATION
  Report Type: 
  Country: None (occurrence: None)
  Receive Date: 20041012
  Receipt Date: 20041012
  Transmission Date: 20050328
  Serious: Yes (Other)
  Sender: FDA-Public Use
  Company Number: None

PATIENT
  Sex: Female

DRUGS (2)
  1. PHENERGAN [Suspect]
     Indication: NAUSEA
     Dosage: 25 MG   ONE TIME  INTRAVENOU
     Route: 042
     Dates: start: 20040925, end: 20040925
  2. IMODIUM [Concomitant]

REACTIONS (4)
  - BURNING SENSATION [None]
  - FEELING ABNORMAL [None]
  - HYPERSENSITIVITY [None]
  - SOMNOLENCE [None]
